FAERS Safety Report 15294031 (Version 1)
Quarter: 2018Q3

REPORT INFORMATION
  Report Type: Spontaneous
  Country: US (occurrence: US)
  Receive Date: 20180807
  Receipt Date: 20180807
  Transmission Date: 20181010
  Serious: Yes (Other)
  Sender: FDA-Public Use
  Company Number: None

PATIENT
  Age: 44 Year
  Sex: Female
  Weight: 81 kg

DRUGS (5)
  1. IVIG TREATMENT INTRAVENOUS [Suspect]
     Active Substance: HUMAN IMMUNOGLOBULIN G
     Indication: MYASTHENIA GRAVIS
     Dosage: QUANTITY:2 IV BAG;?
     Route: 042
     Dates: start: 20170112, end: 20180118
  2. MENTINON PREDNISOLONE ORALLY [Concomitant]
  3. ALLEGRA [Concomitant]
     Active Substance: FEXOFENADINE HYDROCHLORIDE
  4. BROMADINE EYE DROPS [Concomitant]
  5. PREDNISOLONE EYE DROPS [Concomitant]

REACTIONS (5)
  - Vomiting [None]
  - Economic problem [None]
  - Blood urine present [None]
  - Depression [None]
  - Uveitis [None]

NARRATIVE: CASE EVENT DATE: 20170113
